FAERS Safety Report 5393978-3 (Version None)
Quarter: 2007Q3

REPORT INFORMATION
  Report Type: 
  Country: None (occurrence: None)
  Receive Date: 20070723
  Receipt Date: 20061212
  Transmission Date: 20080115
  Serious: No
  Sender: FDA-Public Use
  Company Number: A0631321A

PATIENT
  Age: 68 Year
  Sex: Male

DRUGS (3)
  1. AVANDIA [Suspect]
     Dosage: 4MG PER DAY
  2. NORVASC [Concomitant]
  3. METFORMIN HCL [Concomitant]

REACTIONS (1)
  - OEDEMA [None]
